FAERS Safety Report 12201785 (Version 29)
Quarter: 2021Q3

REPORT INFORMATION
  Report Type: Spontaneous
  Country: GR (occurrence: GR)
  Receive Date: 20160322
  Receipt Date: 20210719
  Transmission Date: 20211014
  Serious: Yes (Hospitalization, Other)
  Sender: FDA-Public Use
  Company Number: PHHY2016GR037171

PATIENT
  Age: 72 Year

DRUGS (4)
  1. DICLOFENAC [Suspect]
     Active Substance: DICLOFENAC
     Indication: CARDIAC FAILURE
     Dosage: UNK
     Route: 065
  2. IRBESARTAN. [Suspect]
     Active Substance: IRBESARTAN
     Indication: CARDIAC FAILURE
     Dosage: 300 MG, QD
     Route: 065
  3. CARVEDILOL. [Suspect]
     Active Substance: CARVEDILOL
     Indication: CARDIAC FAILURE
     Dosage: 6.25 MG, BID
     Route: 065
  4. AMILORIDE [Suspect]
     Active Substance: AMILORIDE
     Indication: CARDIAC FAILURE
     Dosage: 40 MG (FUROSEMIDE) PLUS 5 MG (AMILORIDE), BID
     Route: 065

REACTIONS (12)
  - Renal impairment [Recovered/Resolved]
  - Product use in unapproved indication [Unknown]
  - Muscular weakness [Recovered/Resolved]
  - Hyperkalaemia [Recovered/Resolved]
  - Product administration error [Unknown]
  - Blood creatinine increased [Unknown]
  - Blood urea increased [Unknown]
  - Hyponatraemia [Recovered/Resolved]
  - Product use issue [Unknown]
  - Orthostatic hypotension [Recovered/Resolved]
  - Electrocardiogram T wave abnormal [Unknown]
  - Blood sodium increased [Unknown]
